FAERS Safety Report 13525827 (Version 1)
Quarter: 2017Q2

REPORT INFORMATION
  Report Type: Report from Study
  Country: GB (occurrence: GB)
  Receive Date: 20170509
  Receipt Date: 20170509
  Transmission Date: 20170830
  Serious: Yes (Death)
  Sender: FDA-Public Use
  Company Number: GB-ROCHE-1932517

PATIENT

DRUGS (1)
  1. CAPECITABINE. [Suspect]
     Active Substance: CAPECITABINE
     Indication: RECTAL CANCER
     Dosage: 7 DAYS PER WEEK THROUGHOUT RADIOTHERAPY
     Route: 065

REACTIONS (1)
  - Cardiotoxicity [Fatal]
